FAERS Safety Report 6211311-1 (Version None)
Quarter: 2009Q2

REPORT INFORMATION
  Report Type: 
  Country: None (occurrence: None)
  Receive Date: 20090602
  Receipt Date: 20090527
  Transmission Date: 20091009
  Serious: Yes (Hospitalization)
  Sender: FDA-Public Use
  Company Number: NL-TEVA-193493ISR

PATIENT
  Sex: Female

DRUGS (2)
  1. COPAXONE [Suspect]
     Route: 058
     Dates: start: 20060119
  2. FEMODENE [Concomitant]

REACTIONS (1)
  - UTERINE LEIOMYOMA [None]
